FAERS Safety Report 21452200 (Version 2)
Quarter: 2022Q4

REPORT INFORMATION
  Report Type: Spontaneous
  Country: US (occurrence: US)
  Receive Date: 20221013
  Receipt Date: 20221121
  Transmission Date: 20230113
  Serious: No
  Sender: FDA-Public Use
  Company Number: US-BRISTOL-MYERS SQUIBB COMPANY-2022-117998

PATIENT
  Age: 71 Year
  Sex: Female

DRUGS (2)
  1. REVLIMID [Suspect]
     Active Substance: LENALIDOMIDE
     Indication: Plasma cell myeloma
     Dosage: 1 CAPSULE BY MOUTH ONCE DAILY FOR 14 DAYS ON THEN 7 DAYS OF
     Route: 048
     Dates: start: 20220922
  2. REVLIMID [Suspect]
     Active Substance: LENALIDOMIDE
     Dosage: 1 CAPSULE BY MOUTH ONCE DAILY FOR 14 DAYS ON THEN 7 DAYS OF
     Route: 048
     Dates: start: 202209

REACTIONS (4)
  - Platelet count decreased [Unknown]
  - Off label use [Unknown]
  - Hypotension [Unknown]
  - Platelet count decreased [Unknown]
